FAERS Safety Report 10079594 (Version 1)
Quarter: 2014Q2

REPORT INFORMATION
  Report Type: Spontaneous
  Country: DE (occurrence: DE)
  Receive Date: 20140415
  Receipt Date: 20140415
  Transmission Date: 20141212
  Serious: Yes (Disabling)
  Sender: FDA-Public Use
  Company Number: DE-ASTRAZENECA-2014SE24656

PATIENT
  Sex: Female
  Weight: 93 kg

DRUGS (7)
  1. OMEPRAZOLE [Suspect]
     Route: 048
     Dates: start: 201104, end: 20131014
  2. PROTHYRID [Concomitant]
  3. SOTALOL [Concomitant]
     Dosage: 80, 1 DF, EVERY DAY
  4. SOTALOL [Concomitant]
     Dosage: 80, 0.5 DF IN THE MORNING, 0.5 DF IN THE EVENING
  5. COUMADIN [Concomitant]
  6. TILIDIN [Concomitant]
     Dosage: 100, 1 DF, EVERY DAY IN THE EVENING
  7. TEBONIN [Concomitant]

REACTIONS (1)
  - Breast enlargement [Not Recovered/Not Resolved]
